FAERS Safety Report 23460167 (Version 1)
Quarter: 2024Q1

REPORT INFORMATION
  Report Type: Spontaneous
  Country: US (occurrence: US)
  Receive Date: 20240131
  Receipt Date: 20240131
  Transmission Date: 20240410
  Serious: Yes (Other)
  Sender: FDA-Public Use
  Company Number: US-STRIDES ARCOLAB LIMITED-2023SP013927

PATIENT
  Age: 56 Year
  Sex: Male

DRUGS (9)
  1. CABERGOLINE [Suspect]
     Active Substance: CABERGOLINE
     Indication: Prolactin-producing pituitary tumour
     Dosage: UNK
     Route: 065
     Dates: start: 201703
  2. CABERGOLINE [Suspect]
     Active Substance: CABERGOLINE
     Dosage: 1 MILLIGRAM, TWICE A WEEK
     Route: 065
  3. CABERGOLINE [Suspect]
     Active Substance: CABERGOLINE
     Dosage: UNK, DOSAGE WAS INCREASED
     Route: 065
     Dates: start: 202111
  4. BROMOCRIPTINE [Suspect]
     Active Substance: BROMOCRIPTINE
     Indication: Prolactin-producing pituitary tumour
     Dosage: UNK, INITIAL DOSE NOT STATED
     Route: 065
  5. BROMOCRIPTINE [Suspect]
     Active Substance: BROMOCRIPTINE
     Dosage: 20 MILLIGRAM PER DAY
     Route: 065
  6. TEMOZOLOMIDE [Suspect]
     Active Substance: TEMOZOLOMIDE
     Indication: Prolactin-producing pituitary tumour
     Dosage: UNK
     Route: 065
     Dates: start: 202111
  7. TEMOZOLOMIDE [Suspect]
     Active Substance: TEMOZOLOMIDE
     Dosage: UNK
     Route: 065
     Dates: start: 202302
  8. PAZOPANIB [Suspect]
     Active Substance: PAZOPANIB
     Indication: Prolactin-producing pituitary tumour
     Dosage: 800 MILLIGRAM PER DAY
     Route: 065
     Dates: start: 2022
  9. PEMBROLIZUMAB [Suspect]
     Active Substance: PEMBROLIZUMAB
     Indication: Prolactin-producing pituitary tumour
     Dosage: UNK
     Route: 065
     Dates: start: 202211

REACTIONS (3)
  - Multiple-drug resistance [Unknown]
  - Gastrointestinal disorder [Unknown]
  - Drug ineffective [Unknown]
